FAERS Safety Report 8405871-X (Version None)
Quarter: 2012Q2

REPORT INFORMATION
  Report Type: 
  Country: None (occurrence: None)
  Receive Date: 20120529
  Receipt Date: 20051216
  Transmission Date: 20120825
  Serious: Yes (Hospitalization)
  Sender: FDA-Public Use
  Company Number: 15691-USA-05-3190

PATIENT
  Age: 77 Year
  Sex: Male

DRUGS (15)
  1. TOLVAPTAN (TOLVAPTAN(V4.1)) 30MG [Suspect]
     Indication: CARDIAC FAILURE CONGESTIVE
     Dosage: 30 MG, QD, ORAL
     Route: 048
     Dates: start: 20040729
  2. LIPITOR [Concomitant]
  3. LACTULOSE [Concomitant]
  4. METOLAZONE [Concomitant]
  5. CASODEX (BICALUTAMIDE) TABLET [Concomitant]
  6. XATRAL (ALFUZOSIN) [Concomitant]
  7. SEREVENT (SALMETEROL XINAFOATE) INHALANT [Concomitant]
  8. COUMADIN [Concomitant]
  9. METAMUCIL-2 [Concomitant]
  10. FOLATE (FOLATE SODIUM) [Concomitant]
  11. SPIRONOLACTONE [Concomitant]
  12. FLOVENT (FLUTICASONE PROPIONATE) INHALANT [Concomitant]
  13. SPIRIVA [Concomitant]
  14. SENOKOT [Concomitant]
  15. FUROSEMIDE [Concomitant]

REACTIONS (2)
  - CONDITION AGGRAVATED [None]
  - CARDIAC FAILURE CONGESTIVE [None]
